FAERS Safety Report 24831047 (Version 1)
Quarter: 2025Q1

REPORT INFORMATION
  Report Type: Spontaneous
  Country: US (occurrence: US)
  Receive Date: 20250110
  Receipt Date: 20250110
  Transmission Date: 20250409
  Serious: Yes (Hospitalization, Other)
  Sender: ALEXION PHARMACEUTICALS
  Company Number: US-AstraZeneca-CH-00779061AP

PATIENT

DRUGS (14)
  1. SYMBICORT [Suspect]
     Active Substance: BUDESONIDE\FORMOTEROL FUMARATE DIHYDRATE
     Indication: Asthma
  2. SYMBICORT [Suspect]
     Active Substance: BUDESONIDE\FORMOTEROL FUMARATE DIHYDRATE
     Indication: Chronic obstructive pulmonary disease
     Route: 055
  3. SYMBICORT [Suspect]
     Active Substance: BUDESONIDE\FORMOTEROL FUMARATE DIHYDRATE
  4. SYMBICORT [Suspect]
     Active Substance: BUDESONIDE\FORMOTEROL FUMARATE DIHYDRATE
     Route: 055
  5. BREZTRI [Suspect]
     Active Substance: BUDESONIDE\FORMOTEROL\GLYCOPYRROLATE
  6. BREZTRI [Suspect]
     Active Substance: BUDESONIDE\FORMOTEROL\GLYCOPYRROLATE
     Route: 055
  7. BREZTRI [Suspect]
     Active Substance: BUDESONIDE\FORMOTEROL\GLYCOPYRROLATE
  8. BREZTRI [Suspect]
     Active Substance: BUDESONIDE\FORMOTEROL\GLYCOPYRROLATE
     Route: 055
  9. MUCINEX [Concomitant]
     Active Substance: GUAIFENESIN
     Route: 065
  10. MUCINEX [Concomitant]
     Active Substance: GUAIFENESIN
     Route: 065
  11. OXYCODONE [Concomitant]
     Active Substance: OXYCODONE
     Route: 065
  12. OXYCODONE [Concomitant]
     Active Substance: OXYCODONE
     Route: 065
  13. TYLENOL [Concomitant]
     Active Substance: ACETAMINOPHEN
     Route: 065
  14. TYLENOL [Concomitant]
     Active Substance: ACETAMINOPHEN
     Route: 065

REACTIONS (11)
  - Feeling abnormal [Unknown]
  - Groin abscess [Unknown]
  - Pneumonia [Unknown]
  - Anxiety [Unknown]
  - Dysgeusia [Unknown]
  - Device malfunction [Unknown]
  - Drug dose omission by device [Unknown]
  - Dyspnoea [Unknown]
  - Diverticulum intestinal [Unknown]
  - Wrong technique in device usage process [Unknown]
  - Off label use [Unknown]
